FAERS Safety Report 20756241 (Version 1)
Quarter: 2022Q2

REPORT INFORMATION
  Report Type: Spontaneous
  Country: US (occurrence: None)
  Receive Date: 20220426
  Receipt Date: 20220426
  Transmission Date: 20220721
  Serious: Yes (Hospitalization)
  Sender: FDA-Public Use
  Company Number: None

PATIENT
  Sex: Male

DRUGS (12)
  1. TACROLIMUS [Suspect]
     Active Substance: TACROLIMUS
     Route: 048
     Dates: start: 20220401, end: 202204
  2. ADVAIR DISKUS [Concomitant]
     Active Substance: FLUTICASONE PROPIONATE\SALMETEROL XINAFOATE
  3. AZITHROMYCIN [Concomitant]
     Active Substance: AZITHROMYCIN
  4. COLISTIMETHATE SODIUM [Concomitant]
  5. GABAPENTIN [Concomitant]
     Active Substance: GABAPENTIN
  6. LEFLUNOMIDE [Concomitant]
     Active Substance: LEFLUNOMIDE
  7. NYSTATIN [Concomitant]
     Active Substance: NYSTATIN
  8. ONE TOUCH DELICA PLUS LANC [Concomitant]
  9. OYSCO 500+D [Concomitant]
  10. PANTOPRAZOLE SODIUM [Concomitant]
  11. TACROLIMUS [Concomitant]
     Active Substance: TACROLIMUS
  12. TACROLIMUS A [Concomitant]

REACTIONS (1)
  - Therapy cessation [None]
